FAERS Safety Report 18852231 (Version 1)
Quarter: 2021Q1

REPORT INFORMATION
  Report Type: Spontaneous
  Country: US (occurrence: US)
  Receive Date: 20210205
  Receipt Date: 20210205
  Transmission Date: 20210420
  Serious: Yes (Hospitalization, Other)
  Sender: FDA-Public Use
  Company Number: None

PATIENT
  Age: 68 Year
  Sex: Female
  Weight: 60.21 kg

DRUGS (1)
  1. LUBIPROSTONE [Suspect]
     Active Substance: LUBIPROSTONE
     Indication: CONSTIPATION
     Route: 048

REACTIONS (5)
  - Pulmonary embolism [None]
  - Dizziness [None]
  - Syncope [None]
  - Chest pain [None]
  - Hypotension [None]

NARRATIVE: CASE EVENT DATE: 20210128
